FAERS Safety Report 20126242 (Version 1)
Quarter: 2021Q4

REPORT INFORMATION
  Report Type: Spontaneous
  Country: RU (occurrence: RU)
  Receive Date: 20211129
  Receipt Date: 20211129
  Transmission Date: 20220303
  Serious: Yes (Other)
  Sender: FDA-Public Use
  Company Number: RU-GILEAD-2021-0557544

PATIENT
  Sex: Female

DRUGS (5)
  1. EPCLUSA [Suspect]
     Active Substance: SOFOSBUVIR\VELPATASVIR
     Indication: Chronic hepatitis C
     Route: 065
  2. EPCLUSA [Suspect]
     Active Substance: SOFOSBUVIR\VELPATASVIR
     Indication: Hepatic cirrhosis
  3. RIBAVIRIN [Suspect]
     Active Substance: RIBAVIRIN
     Indication: Chronic hepatitis C
     Route: 065
  4. RIBAVIRIN [Suspect]
     Active Substance: RIBAVIRIN
     Indication: Hepatic cirrhosis
  5. INSULIN NOS [Concomitant]
     Active Substance: INSULIN NOS

REACTIONS (3)
  - Portal hypertension [Unknown]
  - Ascites [Unknown]
  - Haemoglobin decreased [Unknown]
